FAERS Safety Report 16955237 (Version 2)
Quarter: 2019Q4

REPORT INFORMATION
  Report Type: Spontaneous
  Country: JP (occurrence: JP)
  Receive Date: 20191024
  Receipt Date: 20191024
  Transmission Date: 20200122
  Serious: Yes (Hospitalization, Other)
  Sender: FDA-Public Use
  Company Number: JP-TEVA-2019-JP-007307J

PATIENT
  Age: 92 Year
  Sex: Male

DRUGS (1)
  1. CONSTAN 0.4MG.TABLETS [Suspect]
     Active Substance: ALPRAZOLAM
     Indication: PRODUCT USED FOR UNKNOWN INDICATION
     Route: 048

REACTIONS (5)
  - Limb discomfort [Unknown]
  - Neoplasm malignant [Unknown]
  - Cataract [Unknown]
  - Muscular weakness [Unknown]
  - Dizziness [Unknown]
